FAERS Safety Report 26035770 (Version 3)
Quarter: 2025Q4

REPORT INFORMATION
  Report Type: Spontaneous
  Country: AU (occurrence: AU)
  Receive Date: 20251112
  Receipt Date: 20251230
  Transmission Date: 20260118
  Serious: Yes (Other)
  Sender: MYLAN
  Company Number: AU-MYLANLABS-2025M1095136

PATIENT
  Sex: Female

DRUGS (4)
  1. EPIPEN [Suspect]
     Active Substance: EPINEPHRINE
     Indication: Product used for unknown indication
     Dosage: UNK
  2. EPIPEN [Suspect]
     Active Substance: EPINEPHRINE
     Dosage: UNK
     Route: 065
  3. EPIPEN [Suspect]
     Active Substance: EPINEPHRINE
     Dosage: UNK
     Route: 065
  4. EPIPEN [Suspect]
     Active Substance: EPINEPHRINE
     Dosage: UNK

REACTIONS (2)
  - Device failure [Unknown]
  - Drug dose omission by device [Unknown]
